FAERS Safety Report 18780017 (Version 1)
Quarter: 2021Q1

REPORT INFORMATION
  Report Type: Other
  Country: FR (occurrence: FR)
  Receive Date: 20210125
  Receipt Date: 20210125
  Transmission Date: 20210419
  Serious: Yes (Life-Threatening)
  Sender: FDA-Public Use
  Company Number: FR-CADILA HEALTHCARE LIMITED-FR-ZYDUS-061398

PATIENT

DRUGS (2)
  1. TADALAFIL. [Suspect]
     Active Substance: TADALAFIL
     Indication: VENOOCCLUSIVE DISEASE
     Dosage: 40 MILLIGRAM, QD
     Route: 048
     Dates: start: 201808
  2. VOLIBRIS [Suspect]
     Active Substance: AMBRISENTAN
     Indication: VENOOCCLUSIVE DISEASE
     Dosage: 10 MILLIGRAM, QD
     Route: 048
     Dates: start: 201901

REACTIONS (1)
  - Angioedema [Recovered/Resolved]
